FAERS Safety Report 6829288-4 (Version None)
Quarter: 2010Q2

REPORT INFORMATION
  Report Type: 
  Country: None (occurrence: None)
  Receive Date: 20100511
  Receipt Date: 20100426
  Transmission Date: 20101027
  Serious: Yes (Other)
  Sender: FDA-Public Use
  Company Number: OMX-2010-00026

PATIENT
  Age: 81 Year
  Sex: Female

DRUGS (9)
  1. EVICEL [Suspect]
     Indication: HAEMOSTASIS
     Dosage: (250 TO 400 MG AS A SINGLE DOSE) (SPRAYED ON FOR A FEW MINUTES) EPILESIONAL
     Dates: start: 20100121, end: 20100121
  2. PRESSURE REGULATOR DEVICE [Suspect]
     Dates: start: 20100121
  3. TEMESTA (1 MG) [Concomitant]
  4. LACTULOSE (LACTULOSE) (10 G) [Concomitant]
  5. DOLIPRANE (PARACETAMOL) (1 G) [Concomitant]
  6. PRADAXA (75 MG) [Concomitant]
  7. OMEPRAZOLE [Concomitant]
  8. ARESTAL (1 MG) [Concomitant]
  9. SMECTA [Concomitant]

REACTIONS (6)
  - DRUG INEFFECTIVE [None]
  - HAEMATOMA [None]
  - HAEMORRHAGE [None]
  - PROCEDURAL SITE REACTION [None]
  - SCAR [None]
  - WOUND NECROSIS [None]
